FAERS Safety Report 16230310 (Version 2)
Quarter: 2019Q2

REPORT INFORMATION
  Report Type: Spontaneous
  Country: BR (occurrence: BR)
  Receive Date: 20190423
  Receipt Date: 20190621
  Transmission Date: 20190711
  Serious: Yes (Other)
  Sender: FDA-Public Use
  Company Number: BR-BIOMARINAP-BR-2019-123233

PATIENT
  Age: 47 Year
  Sex: Female
  Weight: 48 kg

DRUGS (1)
  1. ALDURAZYME [Suspect]
     Active Substance: LARONIDASE
     Indication: MUCOPOLYSACCHARIDOSIS
     Dosage: UNK, QOW
     Route: 041
     Dates: start: 20091020

REACTIONS (4)
  - Blindness [Unknown]
  - Glaucoma [Unknown]
  - Cardiac valve disease [Unknown]
  - Eye swelling [Unknown]

NARRATIVE: CASE EVENT DATE: 20180619
